FAERS Safety Report 8610320-2 (Version None)
Quarter: 2012Q3

REPORT INFORMATION
  Report Type: 
  Country: None (occurrence: None)
  Receive Date: 20120822
  Receipt Date: 20120809
  Transmission Date: 20120928
  Serious: Yes (Disabling, Other)
  Sender: FDA-Public Use
  Company Number: PHHY2012CA067080

PATIENT
  Sex: Female

DRUGS (9)
  1. CALCIUM [Concomitant]
  2. ASPIRIN [Concomitant]
  3. ATENOLOL [Concomitant]
  4. VITAMIN D [Concomitant]
  5. GLYBURIDE [Concomitant]
  6. METFORMIN [Concomitant]
  7. SYNTHROID [Concomitant]
  8. EXELON [Suspect]
     Dosage: 6 MG, BID
     Route: 048
  9. CLOZARIL [Suspect]
     Indication: SCHIZOPHRENIA
     Dosage: 300 MG
     Route: 048
     Dates: start: 19981012

REACTIONS (1)
  - DEMENTIA ALZHEIMER'S TYPE [None]
